FAERS Safety Report 5509067-0 (Version None)
Quarter: 2007Q4

REPORT INFORMATION
  Report Type: 
  Country: None (occurrence: None)
  Receive Date: 20071107
  Receipt Date: 20071030
  Transmission Date: 20080405
  Serious: Yes (Hospitalization)
  Sender: FDA-Public Use
  Company Number: US-SANOFI-SYNTHELABO-A03200702480

PATIENT
  Sex: Female
  Weight: 59 kg

DRUGS (2)
  1. AMBIEN [Suspect]
     Indication: INSOMNIA
     Route: 048
     Dates: start: 20030601, end: 20040201
  2. KIDNEY MEDICATION [Concomitant]
     Indication: RENAL DISORDER
     Dosage: UNK
     Route: 065

REACTIONS (9)
  - AMNESIA [None]
  - DEPRESSION [None]
  - DRUG ABUSE [None]
  - EATING DISORDER [None]
  - HYPERTENSION [None]
  - PSYCHOTIC BEHAVIOUR [None]
  - SOMNAMBULISM [None]
  - TYPE 2 DIABETES MELLITUS [None]
  - WEIGHT INCREASED [None]
